FAERS Safety Report 16806492 (Version 1)
Quarter: 2019Q3

REPORT INFORMATION
  Report Type: Spontaneous
  Country: ES (occurrence: ES)
  Receive Date: 20190913
  Receipt Date: 20190913
  Transmission Date: 20191005
  Serious: Yes (Death, Hospitalization)
  Sender: FDA-Public Use
  Company Number: ES-MYLANLABS-2019M1086298

PATIENT
  Age: 87 Year
  Sex: Female

DRUGS (2)
  1. PARACETAMOL/TRAMADOL [Suspect]
     Active Substance: ACETAMINOPHEN\TRAMADOL
     Indication: ARTHRALGIA
     Dosage: 1 DOSAGE FORM, Q8H(1-1-1)
     Route: 048
     Dates: start: 20180124, end: 20180413
  2. PARACETAMOL [Suspect]
     Active Substance: ACETAMINOPHEN
     Indication: PAIN
     Dosage: 500 MILLIGRAM, PRN(500MG CADA 8 HORAS A DEMANDA)
     Route: 048
     Dates: start: 20120101

REACTIONS (2)
  - Hepatic failure [Fatal]
  - Renal failure [Fatal]

NARRATIVE: CASE EVENT DATE: 20180413
